FAERS Safety Report 25769308 (Version 1)
Quarter: 2025Q3

REPORT INFORMATION
  Report Type: Report from Study
  Country: US (occurrence: US)
  Receive Date: 20250906
  Receipt Date: 20250906
  Transmission Date: 20251020
  Serious: Yes (Hospitalization)
  Sender: BAUSCH AND LOMB
  Company Number: US-BAUSCHBL-2025BNL015549

PATIENT
  Age: 85 Year
  Sex: Female

DRUGS (2)
  1. MIEBO [Suspect]
     Active Substance: PERFLUOROHEXYLOCTANE
     Indication: Neurotrophic keratopathy
     Dosage: INSTILL 1 DROP INTO EACH EYE 4 TIMES DAILY AS DIRECTED
     Route: 047
     Dates: start: 20250809
  2. MIEBO [Suspect]
     Active Substance: PERFLUOROHEXYLOCTANE
     Indication: Product use in unapproved indication

REACTIONS (2)
  - Transient ischaemic attack [Unknown]
  - Product use in unapproved indication [Unknown]

NARRATIVE: CASE EVENT DATE: 20250101
